FAERS Safety Report 18794885 (Version 2)
Quarter: 2021Q1

REPORT INFORMATION
  Report Type: Report from Study
  Country: US (occurrence: US)
  Receive Date: 20210127
  Receipt Date: 20210203
  Transmission Date: 20210419
  Serious: Yes (Death, Hospitalization)
  Sender: FDA-Public Use
  Company Number: US-BAYER-2020-277865

PATIENT
  Age: 58 Year
  Sex: Male

DRUGS (3)
  1. STIVARGA [Suspect]
     Active Substance: REGORAFENIB
     Indication: COLORECTAL CANCER
     Dosage: DAILY DOSE 80 MG
     Route: 048
     Dates: start: 20201209, end: 20201215
  2. STIVARGA [Suspect]
     Active Substance: REGORAFENIB
     Indication: BREAST CANCER
     Dosage: DAILY DOSE 120 MG
     Route: 048
     Dates: start: 20201216, end: 202012
  3. STIVARGA [Suspect]
     Active Substance: REGORAFENIB
     Indication: COLORECTAL CANCER
     Dosage: 160 MG DAILY FOR 21 DAYS ON 7 DAYS OFF
     Route: 048
     Dates: start: 20201223, end: 20210120

REACTIONS (6)
  - Product dose omission in error [None]
  - Death [Fatal]
  - Abdominal pain [None]
  - Off label use [None]
  - Mental status changes [None]
  - Exercise tolerance decreased [Not Recovered/Not Resolved]

NARRATIVE: CASE EVENT DATE: 20201209
